FAERS Safety Report 14221652 (Version 1)
Quarter: 2017Q4

REPORT INFORMATION
  Report Type: Spontaneous
  Country: US (occurrence: US)
  Receive Date: 20171123
  Receipt Date: 20171123
  Transmission Date: 20180321
  Serious: Yes (Hospitalization)
  Sender: FDA-Public Use
  Company Number: US-BEH-2017085245

PATIENT
  Age: 72 Year
  Sex: Male
  Weight: 108.84 kg

DRUGS (40)
  1. CIPROFLOXACIN. [Concomitant]
     Active Substance: CIPROFLOXACIN
  2. CEFDINIR. [Concomitant]
     Active Substance: CEFDINIR
  3. MORPHINE [Concomitant]
     Active Substance: MORPHINE
  4. METRONIDAZOLE. [Concomitant]
     Active Substance: METRONIDAZOLE
  5. PRAVACHOL [Concomitant]
     Active Substance: PRAVASTATIN SODIUM
  6. ADVAIR HFA [Concomitant]
     Active Substance: FLUTICASONE PROPIONATE\SALMETEROL XINAFOATE
  7. ACETAMINOPHEN. [Concomitant]
     Active Substance: ACETAMINOPHEN
  8. FERROUS SULFATE. [Concomitant]
     Active Substance: FERROUS SULFATE
  9. HIZENTRA [Suspect]
     Active Substance: HUMAN IMMUNOGLOBULIN G
     Dosage: UNK
     Route: 058
  10. LIDOCAINE W/PRILOCAINE [Concomitant]
     Active Substance: LIDOCAINE\PRILOCAINE
  11. ALLOPURINOL. [Concomitant]
     Active Substance: ALLOPURINOL
  12. LASIX [Concomitant]
     Active Substance: FUROSEMIDE
  13. HIZENTRA [Suspect]
     Active Substance: HUMAN IMMUNOGLOBULIN G
     Indication: IMMUNODEFICIENCY COMMON VARIABLE
     Dosage: 8 G, QW
     Route: 058
     Dates: start: 20110310
  14. IBUPROFEN. [Concomitant]
     Active Substance: IBUPROFEN
  15. METFORMIN [Concomitant]
     Active Substance: METFORMIN HYDROCHLORIDE
  16. XANAX [Concomitant]
     Active Substance: ALPRAZOLAM
  17. BUSPIRONE [Concomitant]
     Active Substance: BUSPIRONE HYDROCHLORIDE
  18. FENTANYL. [Concomitant]
     Active Substance: FENTANYL
  19. ZOFRAN [Concomitant]
     Active Substance: ONDANSETRON HYDROCHLORIDE
  20. ALDACTONE [Concomitant]
     Active Substance: SPIRONOLACTONE
  21. WARFARIN [Concomitant]
     Active Substance: WARFARIN
  22. MOBIC [Concomitant]
     Active Substance: MELOXICAM
  23. TYLENOL WITH CODEINE [Concomitant]
     Active Substance: ACETAMINOPHEN\CODEINE PHOSPHATE
  24. ALBUTEROL                          /00139501/ [Concomitant]
     Active Substance: ALBUTEROL
  25. DOXYCYCLINE. [Concomitant]
     Active Substance: DOXYCYCLINE
  26. MUCINEX [Concomitant]
     Active Substance: GUAIFENESIN
  27. DIPHENHYDRAMINE. [Concomitant]
     Active Substance: DIPHENHYDRAMINE
  28. RANITIDINE. [Concomitant]
     Active Substance: RANITIDINE
  29. ASPIRIN. [Concomitant]
     Active Substance: ASPIRIN
  30. FLAGYL [Concomitant]
     Active Substance: METRONIDAZOLE\METRONIDAZOLE HYDROCHLORIDE
  31. LANTUS [Concomitant]
     Active Substance: INSULIN GLARGINE
  32. GLIPIZIDE. [Concomitant]
     Active Substance: GLIPIZIDE
  33. ONE A DAY                          /02262701/ [Concomitant]
     Active Substance: VITAMINS
  34. PRINIVIL [Concomitant]
     Active Substance: LISINOPRIL
  35. EPINEPHRINE. [Concomitant]
     Active Substance: EPINEPHRINE
  36. METAMUCIL [Concomitant]
     Active Substance: PLANTAGO SEED
  37. VITAMIN B12 [Concomitant]
     Active Substance: CYANOCOBALAMIN
  38. SYNTHROID [Concomitant]
     Active Substance: LEVOTHYROXINE SODIUM
  39. OXYGEN. [Concomitant]
     Active Substance: OXYGEN
  40. ZOLOFT [Concomitant]
     Active Substance: SERTRALINE HYDROCHLORIDE

REACTIONS (2)
  - Diverticulitis [Recovered/Resolved]
  - Gastrointestinal disorder [Recovered/Resolved]

NARRATIVE: CASE EVENT DATE: 20171013
